FAERS Safety Report 7779241-1 (Version None)
Quarter: 2011Q3

REPORT INFORMATION
  Report Type: 
  Country: None (occurrence: None)
  Receive Date: 20110926
  Receipt Date: 20110916
  Transmission Date: 20111222
  Serious: Yes (Hospitalization)
  Sender: FDA-Public Use
  Company Number: US-ASTRAZENECA-2011SE42550

PATIENT
  Age: 81 Year
  Sex: Female

DRUGS (1)
  1. NEXIUM [Suspect]
     Route: 048

REACTIONS (4)
  - PERONEAL NERVE PALSY [None]
  - DIABETES MELLITUS [None]
  - ATRIAL FIBRILLATION [None]
  - DYSPEPSIA [None]
